FAERS Safety Report 24324373 (Version 1)
Quarter: 2024Q3

REPORT INFORMATION
  Report Type: Spontaneous
  Country: CZ (occurrence: CZ)
  Receive Date: 20240916
  Receipt Date: 20240916
  Transmission Date: 20241017
  Serious: Yes (Other)
  Sender: IPSEN
  Company Number: CZ-IPSEN Group, Research and Development-2024-18070

PATIENT
  Age: 1 Year
  Weight: 14 kg

DRUGS (1)
  1. BYLVAY [Suspect]
     Active Substance: ODEVIXIBAT
     Indication: Progressive familial intrahepatic cholestasis
     Route: 065

REACTIONS (3)
  - Leukodystrophy [Unknown]
  - Neurological symptom [Unknown]
  - Hypoglycaemia [Unknown]
